FAERS Safety Report 7929424-2 (Version None)
Quarter: 2011Q4

REPORT INFORMATION
  Report Type: 
  Country: None (occurrence: None)
  Receive Date: 20111121
  Receipt Date: 20111116
  Transmission Date: 20120403
  Serious: No
  Sender: FDA-Public Use
  Company Number: US-BIOGENIDEC-2011BI043951

PATIENT
  Age: 47 Year
  Sex: Female

DRUGS (5)
  1. TYSABRI [Suspect]
     Route: 042
     Dates: start: 20070306, end: 20100928
  2. TYSABRI [Suspect]
     Indication: MULTIPLE SCLEROSIS
     Route: 042
     Dates: start: 20111026
  3. TYSABRI [Suspect]
     Route: 042
     Dates: start: 20060919, end: 20061215
  4. TYSABRI [Suspect]
     Route: 042
     Dates: start: 20050110
  5. GILENYA [Concomitant]

REACTIONS (1)
  - MOBILITY DECREASED [None]
